FAERS Safety Report 18883943 (Version 1)
Quarter: 2021Q1

REPORT INFORMATION
  Report Type: Report from Study
  Country: CA (occurrence: CA)
  Receive Date: 20210212
  Receipt Date: 20210212
  Transmission Date: 20210420
  Serious: Yes (Hospitalization, Other)
  Sender: FDA-Public Use
  Company Number: CA-JNJFOC-20201232663

PATIENT
  Age: 21 Year
  Sex: Male
  Weight: 93.9 kg

DRUGS (1)
  1. REMICADE [Suspect]
     Active Substance: INFLIXIMAB
     Indication: CROHN^S DISEASE
     Dosage: ON 23/SEP/2020, THE PATIENT RECEIVED HIS LAST DOSE OF INFLIXIMAB INFUSION.
     Route: 042
     Dates: start: 20200617

REACTIONS (4)
  - Surgery [Unknown]
  - Intestinal resection [Unknown]
  - Crohn^s disease [Unknown]
  - Obstruction [Unknown]

NARRATIVE: CASE EVENT DATE: 20201214
